FAERS Safety Report 15533021 (Version 1)
Quarter: 2018Q4

REPORT INFORMATION
  Report Type: Spontaneous
  Country: US (occurrence: US)
  Receive Date: 20181019
  Receipt Date: 20181019
  Transmission Date: 20190205
  Serious: No
  Sender: FDA-Public Use
  Company Number: US-MYLANLABS-2018M1077088

PATIENT
  Age: 54 Year
  Sex: Male
  Weight: 57 kg

DRUGS (2)
  1. AMITRIPTYLINE [Concomitant]
     Active Substance: AMITRIPTYLINE
     Indication: PRODUCT USED FOR UNKNOWN INDICATION
     Dosage: UNK
     Dates: start: 201809
  2. CLOZAPINE MYLAN [Suspect]
     Active Substance: CLOZAPINE
     Indication: AFFECTIVE DISORDER
     Dosage: 225 MG, HS
     Route: 048

REACTIONS (2)
  - Product use in unapproved indication [Unknown]
  - Neutrophil count increased [Not Recovered/Not Resolved]

NARRATIVE: CASE EVENT DATE: 20181011
